FAERS Safety Report 6764020-4 (Version None)
Quarter: 2010Q2

REPORT INFORMATION
  Report Type: 
  Country: None (occurrence: None)
  Receive Date: 20100610
  Receipt Date: 20091116
  Transmission Date: 20101027
  Serious: No
  Sender: FDA-Public Use
  Company Number: US-ASTRAZENECA-2009SE26629

PATIENT
  Age: 60 Year
  Sex: Female
  Weight: 94.3 kg

DRUGS (13)
  1. FASLODEX [Suspect]
     Dosage: 2 DOSES
     Route: 030
  2. ACTOS [Concomitant]
  3. AVAPRO [Concomitant]
  4. CLARITIN [Concomitant]
  5. CO-Q-10 [Concomitant]
  6. CRESTOR [Concomitant]
  7. DEPRO PEN-XL [Concomitant]
  8. GENUMET [Concomitant]
  9. GLIMEPIRIDE [Concomitant]
  10. LEXAPRO [Concomitant]
  11. PLAVIX [Concomitant]
  12. SINGULAIR [Concomitant]
  13. WELLBUTRIN [Concomitant]

REACTIONS (1)
  - PERSONALITY CHANGE [None]
